FAERS Safety Report 7676291-0 (Version None)
Quarter: 2011Q3

REPORT INFORMATION
  Report Type: 
  Country: None (occurrence: None)
  Receive Date: 20110811
  Receipt Date: 20110315
  Transmission Date: 20111222
  Serious: No
  Sender: FDA-Public Use
  Company Number: US-BAYER-2011-023436

PATIENT
  Age: 56 Year
  Sex: Female

DRUGS (2)
  1. HYDROCODONE [Concomitant]
  2. CIPROFLOXACIN HCL [Suspect]
     Indication: PROPHYLAXIS
     Dosage: TABLET
     Route: 048
     Dates: start: 20110315

REACTIONS (2)
  - PALPITATIONS [None]
  - HEART RATE IRREGULAR [None]
